FAERS Safety Report 6986601-5 (Version None)
Quarter: 2010Q3

REPORT INFORMATION
  Report Type: 
  Country: None (occurrence: None)
  Receive Date: 20100827
  Receipt Date: 20100618
  Transmission Date: 20110219
  Serious: Yes (Hospitalization)
  Sender: FDA-Public Use
  Company Number: AMAG201000271

PATIENT
  Age: 76 Year
  Sex: Male
  Weight: 99.2 kg

DRUGS (6)
  1. FERAHEME [Suspect]
     Indication: IRON DEFICIENCY ANAEMIA
     Dosage: 510 MG, SINGLE, INTRAVENOUS; 510 MG, SINGLE, INTRAVENOUS; 510 MG, SINGLE, INTRVENOUS
     Route: 042
     Dates: start: 20100413, end: 20100413
  2. FERAHEME [Suspect]
     Indication: RENAL FAILURE CHRONIC
     Dosage: 510 MG, SINGLE, INTRAVENOUS; 510 MG, SINGLE, INTRAVENOUS; 510 MG, SINGLE, INTRVENOUS
     Route: 042
     Dates: start: 20100413, end: 20100413
  3. FERAHEME [Suspect]
     Indication: IRON DEFICIENCY ANAEMIA
     Dosage: 510 MG, SINGLE, INTRAVENOUS; 510 MG, SINGLE, INTRAVENOUS; 510 MG, SINGLE, INTRVENOUS
     Route: 042
     Dates: start: 20100420, end: 20100420
  4. FERAHEME [Suspect]
     Indication: RENAL FAILURE CHRONIC
     Dosage: 510 MG, SINGLE, INTRAVENOUS; 510 MG, SINGLE, INTRAVENOUS; 510 MG, SINGLE, INTRVENOUS
     Route: 042
     Dates: start: 20100420, end: 20100420
  5. FERAHEME [Suspect]
     Indication: IRON DEFICIENCY ANAEMIA
     Dosage: 510 MG, SINGLE, INTRAVENOUS; 510 MG, SINGLE, INTRAVENOUS; 510 MG, SINGLE, INTRVENOUS
     Route: 042
     Dates: start: 20100525, end: 20100525
  6. FERAHEME [Suspect]
     Indication: RENAL FAILURE CHRONIC
     Dosage: 510 MG, SINGLE, INTRAVENOUS; 510 MG, SINGLE, INTRAVENOUS; 510 MG, SINGLE, INTRVENOUS
     Route: 042
     Dates: start: 20100525, end: 20100525

REACTIONS (8)
  - CHILLS [None]
  - DIARRHOEA [None]
  - DYSPNOEA [None]
  - HYPERHIDROSIS [None]
  - HYPOTENSION [None]
  - NAUSEA [None]
  - OXYGEN SATURATION DECREASED [None]
  - VOMITING [None]
